FAERS Safety Report 9854242 (Version 2)
Quarter: 2014Q1

REPORT INFORMATION
  Report Type: Spontaneous
  Country: CA (occurrence: CA)
  Receive Date: 20140130
  Receipt Date: 20140130
  Transmission Date: 20141002
  Serious: Yes (Other)
  Sender: FDA-Public Use
  Company Number: CA-AMGEN-CANSP2013058518

PATIENT
  Age: 68 Year
  Sex: Male

DRUGS (1)
  1. PROLIA [Suspect]
     Indication: OSTEOPOROSIS
     Dosage: UNK
     Route: 065
     Dates: start: 20120919

REACTIONS (3)
  - Ankylosing spondylitis [Unknown]
  - Iritis [Not Recovered/Not Resolved]
  - Corneal oedema [Unknown]
